FAERS Safety Report 4765984-0 (Version None)
Quarter: 2005Q3

REPORT INFORMATION
  Report Type: 
  Country: None (occurrence: None)
  Receive Date: 20050912
  Receipt Date: 20050902
  Transmission Date: 20060218
  Serious: Yes (Other)
  Sender: FDA-Public Use
  Company Number: PHFR2005GB02946

PATIENT
  Age: 14 Year
  Sex: Female

DRUGS (2)
  1. LAMOTRIGINE [Concomitant]
  2. TEGRETOL [Suspect]

REACTIONS (1)
  - CEREBROVASCULAR ACCIDENT [None]
